FAERS Safety Report 10750624 (Version 1)
Quarter: 2015Q1

REPORT INFORMATION
  Report Type: Spontaneous
  Country: US (occurrence: None)
  Receive Date: 20150128
  Receipt Date: 20150128
  Transmission Date: 20150721
  Serious: Yes (Other)
  Sender: FDA-Public Use
  Company Number: A14-064-J

PATIENT
  Age: 32 Year
  Sex: Female

DRUGS (2)
  1. MX, SO G, RW [Suspect]
     Active Substance: ALLERGENIC EXTRACTS
     Indication: IMMUNE TOLERANCE INDUCTION
     Dates: start: 20141201
  2. ALT, DM,C,D [Suspect]
     Active Substance: ALLERGENIC EXTRACTS
     Indication: IMMUNE TOLERANCE INDUCTION
     Dates: start: 20141201

REACTIONS (6)
  - Throat tightness [None]
  - Anxiety [None]
  - Malaise [None]
  - Paraesthesia oral [None]
  - Nasal congestion [None]
  - Periorbital oedema [None]

NARRATIVE: CASE EVENT DATE: 20141201
